FAERS Safety Report 9339128 (Version 1)
Quarter: 2013Q2

REPORT INFORMATION
  Report Type: Spontaneous
  Country: US (occurrence: None)
  Receive Date: 20130606
  Receipt Date: 20130606
  Transmission Date: 20140414
  Serious: No
  Sender: FDA-Public Use
  Company Number: None

PATIENT
  Age: 22 Year
  Sex: Male
  Weight: 115.7 kg

DRUGS (1)
  1. SUBOXONE [Suspect]
     Route: 060
     Dates: start: 20130603, end: 20130603

REACTIONS (1)
  - Agitation [None]
